FAERS Safety Report 24778777 (Version 1)
Quarter: 2024Q4

REPORT INFORMATION
  Report Type: Spontaneous
  Country: JP (occurrence: JP)
  Receive Date: 20241226
  Receipt Date: 20241226
  Transmission Date: 20250115
  Serious: Yes (Other)
  Sender: ALEXION PHARMACEUTICALS
  Company Number: JP-ASTRAZENECA-240142797_010520_P_1

PATIENT
  Age: 82 Year

DRUGS (12)
  1. TRUQAP [Suspect]
     Active Substance: CAPIVASERTIB
     Indication: Breast cancer recurrent
     Dosage: ON A 4-DAY-ON, 3-DAY-OFF SCHEDULE
  2. TRUQAP [Suspect]
     Active Substance: CAPIVASERTIB
     Dosage: ON A 4-DAY-ON, 3-DAY-OFF SCHEDULE
     Route: 048
  3. TRUQAP [Suspect]
     Active Substance: CAPIVASERTIB
     Dosage: ON A 4-DAY-ON, 3-DAY-OFF SCHEDULE
  4. TRUQAP [Suspect]
     Active Substance: CAPIVASERTIB
     Dosage: ON A 4-DAY-ON, 3-DAY-OFF SCHEDULE
     Route: 048
  5. TRUQAP [Suspect]
     Active Substance: CAPIVASERTIB
     Dosage: 320 MILLIGRAM, BID ON A 4-DAY-ON, 3-DAY-OFF SCHEDULE
  6. TRUQAP [Suspect]
     Active Substance: CAPIVASERTIB
     Dosage: 320 MILLIGRAM, BID ON A 4-DAY-ON, 3-DAY-OFF SCHEDULE
     Route: 048
  7. TRUQAP [Suspect]
     Active Substance: CAPIVASERTIB
     Dosage: 320 MILLIGRAM, BID ON A 4-DAY-ON, 3-DAY-OFF SCHEDULE
  8. TRUQAP [Suspect]
     Active Substance: CAPIVASERTIB
     Dosage: 320 MILLIGRAM, BID ON A 4-DAY-ON, 3-DAY-OFF SCHEDULE
     Route: 048
  9. FULVESTRANT [Suspect]
     Active Substance: FULVESTRANT
     Indication: Breast cancer recurrent
     Dosage: 500 MILLIGRAM, Q2W
  10. FULVESTRANT [Suspect]
     Active Substance: FULVESTRANT
     Dosage: 500 MILLIGRAM, Q2W
     Route: 030
  11. FULVESTRANT [Suspect]
     Active Substance: FULVESTRANT
     Dosage: 500 MILLIGRAM, Q2W
  12. FULVESTRANT [Suspect]
     Active Substance: FULVESTRANT
     Dosage: 500 MILLIGRAM, Q2W
     Route: 030

REACTIONS (5)
  - Metastases to lung [Unknown]
  - Diarrhoea [Recovered/Resolved]
  - Decreased appetite [Recovering/Resolving]
  - Dyspnoea exertional [Recovering/Resolving]
  - Pleural effusion [Recovering/Resolving]
